FAERS Safety Report 19085019 (Version 1)
Quarter: 2021Q2

REPORT INFORMATION
  Report Type: Report from Study
  Country: BR (occurrence: BR)
  Receive Date: 20210401
  Receipt Date: 20210401
  Transmission Date: 20210717
  Serious: Yes (Other)
  Sender: FDA-Public Use
  Company Number: BR-UCBSA-2021002322

PATIENT
  Sex: Female
  Weight: 95 kg

DRUGS (10)
  1. ZYLORIC [Concomitant]
     Active Substance: ALLOPURINOL
     Indication: BLOOD URIC ACID ABNORMAL
     Dosage: 100 MILLIGRAM, ONCE DAILY (QD)
     Route: 048
  2. REUQUINOL [Concomitant]
     Active Substance: HYDROXYCHLOROQUINE SULFATE
     Indication: RHEUMATOID ARTHRITIS
     Dosage: 400 MILLIGRAM, UNK
     Route: 048
  3. RECONTER [Concomitant]
     Active Substance: ESCITALOPRAM OXALATE
     Indication: DEPRESSION
     Dosage: 20 MILLIGRAM, 6X/DAY
     Route: 048
  4. CORUS [LOSARTAN POTASSIUM] [Concomitant]
     Indication: HYPERTENSION
     Dosage: UNK
     Route: 048
  5. INDAPEN [INDAPAMIDE] [Concomitant]
     Indication: HYPERTENSION
     Dosage: UNK
     Route: 048
  6. DAFLON [BIOFLAVONOIDS;DIOSMIN;HESPERIDIN] [Concomitant]
     Active Substance: BIOFLAVONOIDS\DIOSMIN\HESPERIDIN
     Indication: CARDIOVASCULAR DISORDER
     Dosage: 500 MILLIGRAM, UNK
     Route: 048
  7. ALGINAC [Concomitant]
     Active Substance: CYANOCOBALAMIN\DICLOFENAC SODIUM\PYRIDOXINE HYDROCHLORIDE\THIAMINE MONONITRATE
     Indication: RHEUMATOID ARTHRITIS
     Dosage: UNK
     Route: 048
     Dates: start: 2017
  8. CONDRESS [Concomitant]
     Indication: RHEUMATOID ARTHRITIS
     Dosage: 40 MILLIGRAM, ONCE DAILY (QD)
     Route: 048
  9. CERTOLIZUMAB PEGOL [Suspect]
     Active Substance: CERTOLIZUMAB PEGOL
     Indication: RHEUMATOID ARTHRITIS
     Dosage: 200 MILLIGRAM, EV 2 WEEKS(QOW)
     Route: 058
  10. CALDE [Concomitant]
     Active Substance: CALCIUM CARBONATE\CHOLECALCIFEROL
     Indication: RHEUMATOID ARTHRITIS
     Dosage: UNK
     Route: 048

REACTIONS (2)
  - Cerebral cyst [Recovering/Resolving]
  - Memory impairment [Recovering/Resolving]
